FAERS Safety Report 9129057 (Version 1)
Quarter: 2013Q1

REPORT INFORMATION
  Report Type: Spontaneous
  Country: US (occurrence: US)
  Receive Date: 20130125
  Receipt Date: 20130125
  Transmission Date: 20140127
  Serious: Yes (Other)
  Sender: FDA-Public Use
  Company Number: US-ASTRAZENECA-2013SE03574

PATIENT
  Age: 74 Year
  Sex: Male
  Weight: 104.3 kg

DRUGS (3)
  1. CASODEX [Suspect]
     Indication: NEOPLASM MALIGNANT
     Route: 048
     Dates: start: 1995
  2. SYMBICORT [Suspect]
     Indication: EMPHYSEMA
     Dosage: 160MCG TWO PUFFS TWICE A DAY
     Route: 055
     Dates: start: 2009
  3. ALL KINDS OF PILLS [Concomitant]

REACTIONS (4)
  - Hip fracture [Recovering/Resolving]
  - Diabetes mellitus [Unknown]
  - Hypertension [Unknown]
  - Emphysema [Unknown]
